FAERS Safety Report 18693040 (Version 1)
Quarter: 2021Q1

REPORT INFORMATION
  Report Type: Spontaneous
  Country: CN (occurrence: CN)
  Receive Date: 20210104
  Receipt Date: 20210104
  Transmission Date: 20210419
  Serious: Yes (Life-Threatening, Other)
  Sender: FDA-Public Use
  Company Number: CN-PFIZER INC-2020514468

PATIENT
  Age: 32 Year
  Sex: Male
  Weight: 70 kg

DRUGS (8)
  1. SODIUM CHLORIDE. [Concomitant]
     Active Substance: SODIUM CHLORIDE
     Indication: VEHICLE SOLUTION USE
     Dosage: 100 ML, 3X/DAY
     Route: 041
     Dates: start: 20201130, end: 20201212
  2. SODIUM CHLORIDE. [Concomitant]
     Active Substance: SODIUM CHLORIDE
     Dosage: 100 ML, 1X/DAY
     Route: 041
     Dates: start: 20201130, end: 20201201
  3. SODIUM CHLORIDE. [Concomitant]
     Active Substance: SODIUM CHLORIDE
     Dosage: 100 ML, 2X/DAY
     Route: 041
     Dates: start: 20201202, end: 20201203
  4. TAZOCIN [Suspect]
     Active Substance: PIPERACILLIN SODIUM\TAZOBACTAM SODIUM
     Indication: PNEUMONIA
     Dosage: 4.5 G, 3X/DAY
     Route: 041
     Dates: start: 20201130, end: 20201212
  5. SOLU?MEDROL [Suspect]
     Active Substance: METHYLPREDNISOLONE SODIUM SUCCINATE
     Indication: PULMONARY CONTUSION
     Dosage: 40 MG, 1X/DAY
     Route: 041
     Dates: start: 20201130, end: 20201201
  6. SOLU?MEDROL [Suspect]
     Active Substance: METHYLPREDNISOLONE SODIUM SUCCINATE
     Dosage: 40 MG, 2X/DAY
     Route: 041
     Dates: start: 20201202, end: 20201203
  7. SOLU?MEDROL [Suspect]
     Active Substance: METHYLPREDNISOLONE SODIUM SUCCINATE
     Dosage: 40 MG, 3X/DAY
     Route: 041
     Dates: start: 20201204, end: 20201207
  8. SODIUM CHLORIDE. [Concomitant]
     Active Substance: SODIUM CHLORIDE
     Dosage: 100 ML, 3X/DAY
     Route: 041
     Dates: start: 20201204, end: 20201207

REACTIONS (3)
  - Hepatocellular injury [Recovering/Resolving]
  - Jaundice [Recovering/Resolving]
  - Off label use [Unknown]

NARRATIVE: CASE EVENT DATE: 20201130
